FAERS Safety Report 14681612 (Version 4)
Quarter: 2018Q3

REPORT INFORMATION
  Report Type: Spontaneous
  Country: FR (occurrence: FR)
  Receive Date: 20180326
  Receipt Date: 20180906
  Transmission Date: 20181010
  Serious: Yes (Hospitalization, Other)
  Sender: FDA-Public Use
  Company Number: FR-PFIZER INC-2018121590

PATIENT
  Age: 79 Year
  Sex: Female
  Weight: 50 kg

DRUGS (5)
  1. XALATAN [Suspect]
     Active Substance: LATANOPROST
     Indication: GLAUCOMA
     Dosage: 2 GTT, ONCE DAILY IN THE EVENING
     Route: 065
     Dates: start: 20080606, end: 20180410
  2. AZOPT [Suspect]
     Active Substance: BRINZOLAMIDE
     Indication: GLAUCOMA
     Dosage: 2 GTT, 1X/DAY
     Route: 047
     Dates: start: 2016, end: 20180410
  3. TRAVATAN [Suspect]
     Active Substance: TRAVOPROST
     Indication: GLAUCOMA
     Dosage: 1 GTT, ONCE DAILY (QD)
     Route: 047
     Dates: start: 2008
  4. LEXOMIL [Concomitant]
     Active Substance: BROMAZEPAM
     Indication: SLEEP DISORDER
     Dosage: 0.25 DF, QD
     Route: 048
     Dates: start: 2000
  5. LEXOMIL [Concomitant]
     Active Substance: BROMAZEPAM
     Indication: ANXIETY

REACTIONS (12)
  - Bronchospasm [Recovering/Resolving]
  - Wheezing [Unknown]
  - Pharyngitis [Not Recovered/Not Resolved]
  - Increased bronchial secretion [Unknown]
  - Cough [Recovered/Resolved]
  - Respiratory disorder [Not Recovered/Not Resolved]
  - Dysphagia [Recovering/Resolving]
  - Dyspnoea [Recovered/Resolved]
  - Obstructive airways disorder [Unknown]
  - Weight decreased [Not Recovered/Not Resolved]
  - Asphyxia [Not Recovered/Not Resolved]
  - Asthma [Recovering/Resolving]

NARRATIVE: CASE EVENT DATE: 201712
